FAERS Safety Report 8417993 (Version 2)
Quarter: 2012Q4

REPORT INFORMATION
  Report Type: 
  Country: US (occurrence: US)
  Receive Date: 20120221
  Receipt Date: 20120927
  Transmission Date: 20130627
  Serious: No
  Sender: FDA-Public Use
  Company Number: US-B.I. PHARMACEUTICALS,INC./RIDGEFIELD-2012-BP-02567BP

PATIENT
  Age: 65 Year
  Sex: Female

DRUGS (6)
  1. PRADAXA [Suspect]
     Indication: ATRIAL FIBRILLATION
     Dosage: 300 mg
     Route: 048
     Dates: start: 20120205
  2. MAGNESIUM [Concomitant]
  3. FOSOMAX [Concomitant]
  4. METOPROLOL [Concomitant]
     Dosage: 100 mg
  5. CRESTOR [Concomitant]
  6. VIT D [Concomitant]

REACTIONS (2)
  - Oral discomfort [Not Recovered/Not Resolved]
  - Glossodynia [Not Recovered/Not Resolved]
